FAERS Safety Report 14037958 (Version 6)
Quarter: 2018Q2

REPORT INFORMATION
  Report Type: Other
  Country: CA (occurrence: CA)
  Receive Date: 20171004
  Receipt Date: 20180516
  Transmission Date: 20180711
  Serious: Yes (Other)
  Sender: FDA-Public Use
  Company Number: CA-APOTEX-2017AP019037

PATIENT
  Age: 31 Year
  Sex: Female

DRUGS (18)
  1. APO-PAROXETINE [Suspect]
     Active Substance: PAROXETINE
     Indication: BIPOLAR DISORDER
     Route: 065
  2. DEXTROSE. [Suspect]
     Active Substance: DEXTROSE
     Indication: PRODUCT USED FOR UNKNOWN INDICATION
     Dosage: 50 ML, UNK
     Route: 042
  3. ATIVAN [Suspect]
     Active Substance: LORAZEPAM
     Indication: BIPOLAR DISORDER
     Dosage: UNK
     Route: 065
  4. THIOPENTAL [Suspect]
     Active Substance: THIOPENTAL
     Indication: STATUS EPILEPTICUS
     Dosage: 300 MG, Q.H.
     Route: 042
  5. APO-LORAZEPAM [Suspect]
     Active Substance: LORAZEPAM
     Indication: STATUS EPILEPTICUS
     Dosage: 2 MG, UNK
     Route: 065
  6. APO-PHENYTOIN SODIUM [Suspect]
     Active Substance: PHENYTOIN SODIUM
     Indication: STATUS EPILEPTICUS
     Dosage: 1 G, UNK
     Route: 065
  7. MAGNESIUM SULFATE. [Suspect]
     Active Substance: MAGNESIUM SULFATE
     Indication: STATUS EPILEPTICUS
     Dosage: 2 G, UNK
     Route: 065
  8. THIOPENTAL [Suspect]
     Active Substance: THIOPENTAL
     Dosage: 100 MG, UNK
     Route: 042
  9. APO-MIDAZOLAM INJECTABLE (APOTEX STD) [Suspect]
     Active Substance: MIDAZOLAM HYDROCHLORIDE
     Indication: STATUS EPILEPTICUS
     Dosage: 3 MG, UNK
     Route: 065
  10. APO-METOCLOP [Suspect]
     Active Substance: METOCLOPRAMIDE HYDROCHLORIDE
     Indication: PROPHYLAXIS
     Dosage: 10 MG, UNK
     Route: 042
  11. SODIUM CITRATE. [Suspect]
     Active Substance: SODIUM CITRATE
     Indication: PROPHYLAXIS
     Dosage: 30 ML, UNK
     Route: 048
  12. THIOPENTAL [Suspect]
     Active Substance: THIOPENTAL
     Dosage: 250 MG, UNK
     Route: 042
  13. APO-DIAZEPAM [Suspect]
     Active Substance: DIAZEPAM
     Indication: STATUS EPILEPTICUS
     Dosage: 10 MG, UNK
     Route: 065
  14. THIOPENTAL [Suspect]
     Active Substance: THIOPENTAL
     Dosage: 300 MG, Q.H.
     Route: 042
  15. PROPOFOL. [Suspect]
     Active Substance: PROPOFOL
     Indication: STATUS EPILEPTICUS
     Dosage: 200 MG, Q.H.
     Route: 042
  16. SUCCINYLCHOLINE CHLORIDE. [Suspect]
     Active Substance: SUCCINYLCHOLINE CHLORIDE
     Indication: ENDOTRACHEAL INTUBATION
     Dosage: 100 MG, UNK
     Route: 065
  17. THIOPENTAL [Suspect]
     Active Substance: THIOPENTAL
     Indication: ENDOTRACHEAL INTUBATION
     Dosage: 100 MG, UNK
     Route: 042
  18. THIOPENTAL [Suspect]
     Active Substance: THIOPENTAL
     Dosage: 250 MG, UNK
     Route: 042

REACTIONS (18)
  - Left ventricular dysfunction [Recovered/Resolved]
  - Renal impairment [Recovered/Resolved]
  - PO2 increased [Recovered/Resolved]
  - Blood bicarbonate decreased [Recovered/Resolved]
  - Oxygen saturation abnormal [Recovered/Resolved]
  - Exposure during pregnancy [Not Recovered/Not Resolved]
  - Renal ischaemia [Recovered/Resolved]
  - Diabetes insipidus [Recovered/Resolved]
  - Loss of consciousness [Recovered/Resolved]
  - Blood calcium decreased [Recovered/Resolved]
  - Drug ineffective [Recovered/Resolved]
  - Maternal exposure during pregnancy [Recovered/Resolved]
  - Blood magnesium decreased [Recovered/Resolved]
  - PCO2 increased [Recovered/Resolved]
  - Hypotension [Recovered/Resolved]
  - Foetal death [Recovered/Resolved]
  - Blood pH decreased [Recovered/Resolved]
  - Encephalopathy [Recovered/Resolved]
